FAERS Safety Report 9348027 (Version 1)
Quarter: 2013Q2

REPORT INFORMATION
  Report Type: Spontaneous
  Country: BE (occurrence: BE)
  Receive Date: 20130614
  Receipt Date: 20130614
  Transmission Date: 20140414
  Serious: Yes (Death)
  Sender: FDA-Public Use
  Company Number: BE-JNJFOC-20130607495

PATIENT
  Age: 75 Year
  Sex: Male

DRUGS (10)
  1. XARELTO [Suspect]
     Indication: CEREBROVASCULAR ACCIDENT PROPHYLAXIS
     Route: 048
     Dates: start: 201301
  2. XARELTO [Suspect]
     Indication: ATRIAL FLUTTER
     Route: 048
     Dates: start: 201301
  3. XARELTO [Suspect]
     Indication: ATRIAL FIBRILLATION
     Route: 048
     Dates: start: 201301
  4. FUROSEMIDE [Concomitant]
     Indication: HYPERTENSION
     Route: 048
  5. DUOVENT [Concomitant]
     Indication: CHRONIC OBSTRUCTIVE PULMONARY DISEASE
  6. ASAFLOW [Concomitant]
     Indication: CARDIAC DISORDER
     Route: 048
  7. SERETIDE [Concomitant]
     Indication: CHRONIC OBSTRUCTIVE PULMONARY DISEASE
  8. SPIRIVA [Concomitant]
     Indication: CHRONIC OBSTRUCTIVE PULMONARY DISEASE
     Route: 065
  9. TRITACE [Concomitant]
     Indication: HYPERTENSION
     Route: 048
  10. ISOTEN [Concomitant]
     Indication: HYPERTENSION
     Route: 048

REACTIONS (1)
  - Acute hepatic failure [Fatal]
